FAERS Safety Report 25143054 (Version 1)
Quarter: 2025Q2

REPORT INFORMATION
  Report Type: Spontaneous
  Country: CN (occurrence: CN)
  Receive Date: 20250401
  Receipt Date: 20250401
  Transmission Date: 20250716
  Serious: Yes (Hospitalization, Other)
  Sender: GLAXOSMITHKLINE
  Company Number: CN-GLAXOSMITHKLINE INC-CN2025APC035551

PATIENT

DRUGS (1)
  1. NUCALA [Suspect]
     Active Substance: MEPOLIZUMAB
     Indication: Eosinophilic granulomatosis with polyangiitis
     Route: 058
     Dates: start: 20250312

REACTIONS (11)
  - Pancreatic carcinoma [Unknown]
  - Sinusitis [Unknown]
  - Lung disorder [Unknown]
  - Obstruction [Unknown]
  - Bronchial wall thickening [Unknown]
  - Abdominal discomfort [Unknown]
  - Urticaria [Unknown]
  - Jaundice [Unknown]
  - Liver disorder [Unknown]
  - Ill-defined disorder [Unknown]
  - Off label use [Unknown]

NARRATIVE: CASE EVENT DATE: 20250301
